FAERS Safety Report 6570929-7 (Version None)
Quarter: 2010Q1

REPORT INFORMATION
  Report Type: 
  Country: None (occurrence: None)
  Receive Date: 20100203
  Receipt Date: 20100203
  Transmission Date: 20100710
  Serious: No
  Sender: FDA-Public Use
  Company Number: None

PATIENT
  Sex: Male
  Weight: 83.6 kg

DRUGS (4)
  1. MERCAPTOPURINE [Suspect]
     Dosage: 1000 MG
  2. METHOTREXATE [Suspect]
     Dosage: 15 MG
  3. PREDNISONE TAB [Suspect]
     Dosage: 320 MG
  4. VINCRISTINE SULFATE [Suspect]
     Dosage: 2 MG

REACTIONS (4)
  - ALANINE AMINOTRANSFERASE INCREASED [None]
  - ASPARTATE AMINOTRANSFERASE INCREASED [None]
  - BLOOD BILIRUBIN INCREASED [None]
  - HEPATIC FIBROSIS [None]
